FAERS Safety Report 19039632 (Version 6)
Quarter: 2022Q4

REPORT INFORMATION
  Report Type: Spontaneous
  Country: US (occurrence: US)
  Receive Date: 20210322
  Receipt Date: 20221108
  Transmission Date: 20230113
  Serious: Yes (Other)
  Sender: FDA-Public Use
  Company Number: US-ORGANON-O2103USA000709

PATIENT
  Sex: Female
  Weight: 120.7 kg

DRUGS (2)
  1. NEXPLANON [Suspect]
     Active Substance: ETONOGESTREL
     Indication: Contraception
     Dosage: 1 ROD EVERY 3 YEARS, LEFT UPPER ARM
     Route: 059
     Dates: start: 20200712, end: 20210224
  2. NEXPLANON [Suspect]
     Active Substance: ETONOGESTREL
     Indication: Contraception
     Dosage: 1 IMPLANT OF 68 MILLIGRAM, LEFT UPPER ARM
     Route: 058
     Dates: start: 20210224, end: 20220908

REACTIONS (6)
  - Device breakage [Recovered/Resolved]
  - Device kink [Recovered/Resolved]
  - Device kink [Recovered/Resolved]
  - Device breakage [Recovered/Resolved]
  - Pain [Recovered/Resolved]
  - Amenorrhoea [Unknown]

NARRATIVE: CASE EVENT DATE: 20200101
